FAERS Safety Report 15606710 (Version 1)
Quarter: 2018Q4

REPORT INFORMATION
  Report Type: Spontaneous
  Country: US (occurrence: US)
  Receive Date: 20181111
  Receipt Date: 20181111
  Transmission Date: 20190205
  Serious: Yes (Disabling, Other)
  Sender: FDA-Public Use
  Company Number: None

PATIENT
  Age: 47 Year
  Sex: Male
  Weight: 85.5 kg

DRUGS (13)
  1. MVI [Concomitant]
     Active Substance: VITAMINS
  2. VITAMIN D3 [Concomitant]
     Active Substance: CHOLECALCIFEROL
  3. TURMERIC [Concomitant]
     Active Substance: HERBALS\TURMERIC
  4. TOPIRAMATE. [Suspect]
     Active Substance: TOPIRAMATE
     Indication: PAIN
     Dosage: ?          QUANTITY:30 TABLET(S);?
     Route: 048
     Dates: start: 20170409, end: 20170412
  5. TRAMADOL. [Concomitant]
     Active Substance: TRAMADOL
  6. NORCO [Concomitant]
     Active Substance: ACETAMINOPHEN\HYDROCODONE BITARTRATE
  7. COQ10 [Concomitant]
     Active Substance: UBIDECARENONE
  8. LYSINE [Concomitant]
     Active Substance: LYSINE
  9. DILTIAZEM. [Concomitant]
     Active Substance: DILTIAZEM
  10. ASA [Concomitant]
     Active Substance: ASPIRIN
  11. RANATIDINE [Concomitant]
  12. IRON [Concomitant]
     Active Substance: IRON
  13. MAGNESIUM [Concomitant]
     Active Substance: MAGNESIUM

REACTIONS (3)
  - Tinnitus [None]
  - Headache [None]
  - Deafness [None]

NARRATIVE: CASE EVENT DATE: 20170412
